FAERS Safety Report 8355324-2 (Version None)
Quarter: 2012Q2

REPORT INFORMATION
  Report Type: 
  Country: None (occurrence: None)
  Receive Date: 20120511
  Receipt Date: 20120504
  Transmission Date: 20120825
  Serious: Yes (Hospitalization, Other)
  Sender: FDA-Public Use
  Company Number: US-ROXANE LABORATORIES, INC.-2012-RO-01185RO

PATIENT
  Age: 74 Year
  Sex: Female

DRUGS (4)
  1. CLARITHROMYCIN [Suspect]
     Indication: HELICOBACTER INFECTION
  2. AMOXICILLIN [Suspect]
     Indication: HELICOBACTER INFECTION
  3. OMEPRAZOLE [Suspect]
     Indication: HELICOBACTER INFECTION
  4. DENAN [Suspect]

REACTIONS (2)
  - FALL [None]
  - RHABDOMYOLYSIS [None]
